FAERS Safety Report 5289664-0 (Version None)
Quarter: 2007Q2

REPORT INFORMATION
  Report Type: 
  Country: None (occurrence: None)
  Receive Date: 20070406
  Receipt Date: 20070329
  Transmission Date: 20071010
  Serious: Yes (Hospitalization)
  Sender: FDA-Public Use
  Company Number: 2007SE01883

PATIENT
  Sex: Male

DRUGS (2)
  1. SYMBICORT [Suspect]
     Indication: ASTHMA
     Route: 055
  2. CARDIZEM [Concomitant]
     Indication: HYPERTENSION

REACTIONS (2)
  - MUSCLE SPASMS [None]
  - THROMBOSIS [None]
